FAERS Safety Report 12377884 (Version 1)
Quarter: 2016Q2

REPORT INFORMATION
  Report Type: Spontaneous
  Country: US (occurrence: US)
  Receive Date: 20160517
  Receipt Date: 20160517
  Transmission Date: 20160815
  Serious: No
  Sender: FDA-Public Use
  Company Number: US-JNJFOC-20160413863

PATIENT
  Age: 3 Year
  Sex: Female
  Weight: 12.7 kg

DRUGS (1)
  1. CHILDRENS TYLENOL [Suspect]
     Active Substance: ACETAMINOPHEN
     Indication: EXTRA DOSE ADMINISTERED
     Dosage: ONCE
     Route: 048
     Dates: start: 20160413, end: 20160413

REACTIONS (1)
  - Extra dose administered [Unknown]
